FAERS Safety Report 9258437 (Version 3)
Quarter: 2013Q4

REPORT INFORMATION
  Report Type: Spontaneous
  Country: IT (occurrence: IT)
  Receive Date: 20130426
  Receipt Date: 20131016
  Transmission Date: 20140711
  Serious: Yes (Hospitalization)
  Sender: FDA-Public Use
  Company Number: PHHY2013IT040033

PATIENT
  Sex: Male

DRUGS (7)
  1. ATENOLOL [Suspect]
     Dates: end: 20130316
  2. ATENOLOL [Suspect]
     Dosage: 25 MG, TOTAL
     Dates: start: 20130323, end: 20130323
  3. KANRENOL [Concomitant]
  4. LASIX [Concomitant]
  5. TRIATEC [Concomitant]
  6. SINTROM [Concomitant]
  7. VENITRIN [Concomitant]
     Route: 062

REACTIONS (4)
  - Palpitations [Recovered/Resolved]
  - Asthenia [Recovered/Resolved]
  - Bradycardia [Recovered/Resolved]
  - Blood pressure decreased [Recovered/Resolved]
